FAERS Safety Report 16840430 (Version 8)
Quarter: 2023Q1

REPORT INFORMATION
  Report Type: Spontaneous
  Country: US (occurrence: US)
  Receive Date: 20190923
  Receipt Date: 20230207
  Transmission Date: 20230418
  Serious: Yes (Hospitalization, Other)
  Sender: FDA-Public Use
  Company Number: US-PFIZER INC-2019239360

PATIENT
  Age: 72 Year
  Sex: Female

DRUGS (2)
  1. LORBRENA [Suspect]
     Active Substance: LORLATINIB
     Indication: Lung neoplasm malignant
     Dosage: 100 MG
  2. LORBRENA [Suspect]
     Active Substance: LORLATINIB
     Dosage: 25 MG

REACTIONS (6)
  - COVID-19 [Unknown]
  - Brain oedema [Unknown]
  - Headache [Unknown]
  - Nasopharyngitis [Unknown]
  - Confusional state [Unknown]
  - Off label use [Unknown]
